FAERS Safety Report 16584681 (Version 2)
Quarter: 2019Q3

REPORT INFORMATION
  Report Type: Report from Study
  Country: US (occurrence: US)
  Receive Date: 20190717
  Receipt Date: 20190829
  Transmission Date: 20191004
  Serious: Yes (Hospitalization)
  Sender: FDA-Public Use
  Company Number: US-BIOGEN-2019BI00762212

PATIENT
  Age: 56 Year
  Sex: Female

DRUGS (3)
  1. AVONEX [Suspect]
     Active Substance: INTERFERON BETA-1A
     Indication: MULTIPLE SCLEROSIS
     Route: 065
     Dates: start: 19991201, end: 20190601
  2. HEPARIN [Concomitant]
     Active Substance: HEPARIN SODIUM
     Indication: PRODUCT USED FOR UNKNOWN INDICATION
     Route: 065
  3. TECFIDERA [Suspect]
     Active Substance: DIMETHYL FUMARATE
     Indication: MULTIPLE SCLEROSIS
     Route: 065

REACTIONS (15)
  - Indifference [Recovered/Resolved]
  - Asthenia [Not Recovered/Not Resolved]
  - Seizure [Unknown]
  - Balance disorder [Not Recovered/Not Resolved]
  - Memory impairment [Recovered/Resolved]
  - Motor dysfunction [Not Recovered/Not Resolved]
  - Incontinence [Recovered/Resolved]
  - Loss of consciousness [Unknown]
  - Fatigue [Not Recovered/Not Resolved]
  - Coordination abnormal [Recovered/Resolved]
  - Unresponsive to stimuli [Recovered/Resolved]
  - Aggression [Recovered/Resolved]
  - Somnolence [Unknown]
  - Blood pressure abnormal [Recovered/Resolved]
  - Feeling abnormal [Recovered/Resolved]

NARRATIVE: CASE EVENT DATE: 201906
